FAERS Safety Report 21439781 (Version 2)
Quarter: 2022Q4

REPORT INFORMATION
  Report Type: Other
  Country: DE (occurrence: DE)
  Receive Date: 20221011
  Receipt Date: 20221021
  Transmission Date: 20230113
  Serious: Yes (Hospitalization)
  Sender: FDA-Public Use
  Company Number: DE-IBSA PHARMA INC.-2022IBS000300

PATIENT
  Age: 55 Year
  Sex: Male
  Weight: 142 kg

DRUGS (6)
  1. LEVOTHYROXINE SODIUM [Suspect]
     Active Substance: LEVOTHYROXINE SODIUM
     Indication: Medication error
     Dosage: 100 MICROGRAM, QD
     Route: 048
  2. TESTOSTERONE [Suspect]
     Active Substance: TESTOSTERONE
     Indication: Product used for unknown indication
     Dosage: 23 MICROGRAM, QD
     Route: 062
  3. HYDROCORTISONE [Suspect]
     Active Substance: HYDROCORTISONE
     Indication: Product used for unknown indication
     Dosage: 10 MILLIGRAM, 3-1.5-0.5-0
  4. PHENPROCOUMON [Concomitant]
     Active Substance: PHENPROCOUMON
     Indication: Product used for unknown indication
     Dosage: 3 MG, EITHER HALF OR ONE WHOLE TABLET IN THE EVENING
  5. SOTALOL [Concomitant]
     Active Substance: SOTALOL
     Indication: Product used for unknown indication
     Dosage: UNK
  6. AGOMELATINE [Concomitant]
     Active Substance: AGOMELATINE
     Indication: Product used for unknown indication
     Dosage: UNK

REACTIONS (9)
  - Weight bearing difficulty [Unknown]
  - Chest discomfort [Unknown]
  - Flank pain [Unknown]
  - Oedema peripheral [Unknown]
  - Gastrointestinal pain [Unknown]
  - Therapeutic drug monitoring analysis not performed [Unknown]
  - Nausea [Unknown]
  - Vomiting [Unknown]
  - Dyspnoea [Unknown]
